FAERS Safety Report 8229911-6 (Version None)
Quarter: 2012Q1

REPORT INFORMATION
  Report Type: 
  Country: None (occurrence: None)
  Receive Date: 20120323
  Receipt Date: 20120315
  Transmission Date: 20120608
  Serious: Yes (Hospitalization)
  Sender: FDA-Public Use
  Company Number: US-BIOGENIDEC-2012BI009801

PATIENT
  Sex: Female

DRUGS (3)
  1. AVONEX [Suspect]
     Indication: MULTIPLE SCLEROSIS
     Route: 030
  2. HYPERTENSION MEDICATION NOS [Concomitant]
  3. AVONEX [Suspect]
     Route: 030
     Dates: start: 20111201

REACTIONS (2)
  - AORTIC ANEURYSM [None]
  - HYPOTENSION [None]
